FAERS Safety Report 6631510-4 (Version None)
Quarter: 2010Q1

REPORT INFORMATION
  Report Type: 
  Country: None (occurrence: None)
  Receive Date: 20100312
  Receipt Date: 20100302
  Transmission Date: 20100710
  Serious: Yes (Hospitalization, Other)
  Sender: FDA-Public Use
  Company Number: PHHY2010US12197

PATIENT
  Age: 27 Year
  Sex: Male

DRUGS (9)
  1. CLOZAPINE [Suspect]
     Dosage: 50 MG, AT BED TIME
  2. CLOZAPINE [Suspect]
     Dosage: 300 MG, BED TIME
  3. ZIPRASIDONE HCL [Concomitant]
     Dosage: 200 MG, QD
  4. ZIPRASIDONE HCL [Concomitant]
     Dosage: 40 MG EVERY 2 DAYS
  5. HALOPERIDOL [Concomitant]
     Dosage: 20 MG, QD
  6. DIVALPROEX SODIUM [Concomitant]
     Dosage: 1500 MG, QD
  7. VENLAFAXINE [Concomitant]
     Dosage: 150 MG, QD
  8. ATOMOXETINE HCL [Concomitant]
     Indication: DISTURBANCE IN ATTENTION
     Dosage: 25 MG, IN THE MORNING
  9. AZITHROMYC [Concomitant]

REACTIONS (17)
  - BRONCHIAL SECRETION RETENTION [None]
  - CARDIAC FAILURE ACUTE [None]
  - CHEST PAIN [None]
  - CHILLS [None]
  - DEHYDRATION [None]
  - DYSPHAGIA [None]
  - DYSPNOEA [None]
  - EJECTION FRACTION DECREASED [None]
  - ELECTROCARDIOGRAM ST SEGMENT ELEVATION [None]
  - INFLUENZA LIKE ILLNESS [None]
  - LEFT VENTRICULAR DYSFUNCTION [None]
  - MYOCARDITIS [None]
  - PNEUMONIA [None]
  - PRODUCTIVE COUGH [None]
  - PULMONARY OEDEMA [None]
  - PYREXIA [None]
  - SINUS TACHYCARDIA [None]
